FAERS Safety Report 9223102 (Version 1)
Quarter: 2013Q1

REPORT INFORMATION
  Report Type: Spontaneous
  Country: US (occurrence: None)
  Receive Date: 20120912
  Receipt Date: 20120912
  Transmission Date: 20140127
  Serious: No
  Sender: FDA-Public Use
  Company Number: 2012SP029852

PATIENT
  Age: 50 Year
  Sex: Female

DRUGS (7)
  1. VICTRELIS [Suspect]
     Indication: HEPATITIS C
     Route: 048
     Dates: start: 20110917, end: 20120507
  2. OXYCONTIN [Concomitant]
  3. ALPRAZOLAM [Concomitant]
  4. LISINOPRIL HCTZ [Concomitant]
  5. LACTULOSE [Concomitant]
  6. MIRALAX [Concomitant]
  7. ZINC SULFATE [Concomitant]

REACTIONS (1)
  - Withdrawal syndrome [None]
